FAERS Safety Report 6882017-0 (Version None)
Quarter: 2010Q3

REPORT INFORMATION
  Report Type: 
  Country: None (occurrence: None)
  Receive Date: 20100728
  Receipt Date: 20100728
  Transmission Date: 20110219
  Serious: Yes (Life-Threatening, Hospitalization)
  Sender: FDA-Public Use
  Company Number: None

PATIENT
  Sex: Female
  Weight: 54.4316 kg

DRUGS (9)
  1. CHANTIX [Suspect]
     Indication: NICOTINE DEPENDENCE
     Dosage: 1 MG BID
  2. CHANTIX [Suspect]
     Dosage: 1 MG BID
  3. RISPERDAL [Concomitant]
  4. ABILIFY [Concomitant]
  5. DEPAKOTE [Concomitant]
  6. LAMICTAL [Concomitant]
  7. COREG [Concomitant]
  8. ALLOPURINOL [Concomitant]
  9. TRAMADOL HYDROCHLORIDE [Concomitant]

REACTIONS (1)
  - SICKLE CELL ANAEMIA WITH CRISIS [None]
